FAERS Safety Report 7505405-8 (Version None)
Quarter: 2011Q2

REPORT INFORMATION
  Report Type: 
  Country: None (occurrence: None)
  Receive Date: 20110526
  Receipt Date: 20110519
  Transmission Date: 20111010
  Serious: Yes (Hospitalization)
  Sender: FDA-Public Use
  Company Number: US-ROXANE LABORATORIES, INC.-2011-RO-00697RO

PATIENT
  Age: 45 Year
  Sex: Female

DRUGS (9)
  1. METHIMAZOLE [Suspect]
     Indication: HYPERTHYROIDISM
     Dosage: 20 MG
  2. PANTOPRAZOLE [Suspect]
     Dosage: 40 MG
  3. ALENDRONATE SODIUM [Suspect]
  4. ATENOLOL [Suspect]
     Dosage: 25 MG
  5. LEVETIRACETAM [Suspect]
     Indication: PARTIAL SEIZURES
     Dosage: 1000 MG
  6. IPRATROPIUM BROMIDE AND ALBUTEROL SULFATE [Suspect]
  7. FEXOFENADINE [Suspect]
     Dosage: 120 MG
  8. PROPOXYPHENE HCL AND ACETAMINOPHEN [Suspect]
     Indication: PAIN
  9. INSULIN [Suspect]

REACTIONS (1)
  - ACUTE GENERALISED EXANTHEMATOUS PUSTULOSIS [None]
